FAERS Safety Report 19349821 (Version 1)
Quarter: 2021Q2

REPORT INFORMATION
  Report Type: Spontaneous
  Country: SE (occurrence: SE)
  Receive Date: 20210531
  Receipt Date: 20210531
  Transmission Date: 20210717
  Serious: Yes (Other)
  Sender: FDA-Public Use
  Company Number: SE-TEVA-2021-SE-1916191

PATIENT
  Age: 44 Year
  Sex: Female

DRUGS (1)
  1. MIRTAZAPIN ACTAVIS 15 MG FILMDRAGERAD TABLETT [Suspect]
     Active Substance: MIRTAZAPINE
     Indication: SLEEP DISORDER
     Dosage: 15 MILLIGRAM DAILY; 1 TABLET FOR THE EVENING
     Route: 048
     Dates: start: 20210409, end: 20210410

REACTIONS (2)
  - Dysphemia [Recovered/Resolved]
  - Aggression [Recovered/Resolved]

NARRATIVE: CASE EVENT DATE: 20210410
